FAERS Safety Report 19944874 (Version 2)
Quarter: 2021Q4

REPORT INFORMATION
  Report Type: Spontaneous
  Country: US (occurrence: US)
  Receive Date: 20211011
  Receipt Date: 20211118
  Transmission Date: 20220303
  Serious: No
  Sender: FDA-Public Use
  Company Number: US-ORGANON-O2110USA000605

PATIENT
  Age: 37 Year
  Sex: Female
  Weight: 58 kg

DRUGS (1)
  1. NEXPLANON [Suspect]
     Active Substance: ETONOGESTREL
     Dosage: 1 IMPLANT IN RIGHT ARM;68 MILLIGRAM EVERY 3 YEARS
     Route: 059
     Dates: start: 20190402, end: 20210714

REACTIONS (3)
  - Complication of device removal [Recovered/Resolved]
  - Device breakage [Unknown]
  - Implant site scar [Unknown]

NARRATIVE: CASE EVENT DATE: 20210714
